FAERS Safety Report 6641547-7 (Version None)
Quarter: 2010Q1

REPORT INFORMATION
  Report Type: 
  Country: None (occurrence: None)
  Receive Date: 20100317
  Receipt Date: 20100317
  Transmission Date: 20100710
  Serious: Yes (Death)
  Sender: FDA-Public Use
  Company Number: None

PATIENT
  Age: 69 Year
  Sex: Male
  Weight: 97 kg

DRUGS (10)
  1. TACROLIMUS [Suspect]
     Indication: PROPHYLAXIS
     Dosage: 4 MG Q12O PO OUTPATIENT  MED
     Route: 048
  2. AZATHIOPRINE [Concomitant]
  3. M.V.I. [Concomitant]
  4. NYSTATIN [Concomitant]
  5. MIDODRINE HYDROCHLORIDE [Concomitant]
  6. PREDNISONE TAB [Concomitant]
  7. ONDANSERTRON [Concomitant]
  8. FERROUS SULFATE TAB [Concomitant]
  9. LANSOPRAZOLE [Concomitant]
  10. LACTOBACILLUS [Concomitant]

REACTIONS (6)
  - BLOOD BILIRUBIN INCREASED [None]
  - CLOSTRIDIAL INFECTION [None]
  - CONTINUOUS HAEMODIAFILTRATION [None]
  - HYPOGLYCAEMIA [None]
  - HYPOTENSION [None]
  - PNEUMONIA [None]
